FAERS Safety Report 7040074-5 (Version None)
Quarter: 2010Q4

REPORT INFORMATION
  Report Type: 
  Country: None (occurrence: None)
  Receive Date: 20101012
  Receipt Date: 20100928
  Transmission Date: 20110411
  Serious: Yes (Hospitalization)
  Sender: FDA-Public Use
  Company Number: PHHY2009IL41180

PATIENT
  Age: 32 Year
  Sex: Female
  Weight: 52 kg

DRUGS (10)
  1. EXJADE [Suspect]
     Indication: THALASSAEMIA BETA
     Dosage: 2000MG/ DAY
     Route: 048
     Dates: start: 20061201
  2. EXJADE [Suspect]
     Indication: IRON OVERLOAD
     Dosage: 30 MG/KG DAILY
     Route: 048
     Dates: start: 20070301, end: 20080501
  3. EXJADE [Suspect]
     Dosage: 40 MG/KG
     Route: 048
     Dates: start: 20080501
  4. EXJADE [Suspect]
     Dosage: 30 MG/KG / DAY
     Route: 048
     Dates: start: 20090501
  5. EXJADE [Suspect]
     Dosage: 38 MG/KG/D
     Route: 048
  6. AMOXICILLIN [Concomitant]
     Route: 048
  7. PROGESTERONE [Concomitant]
     Route: 048
  8. CALCIUM [Concomitant]
     Route: 048
  9. VITAMIN D3 [Concomitant]
     Route: 048
  10. PHENAZOPYRIDINE HCL TAB [Concomitant]
     Indication: URINARY TRACT INFECTION

REACTIONS (9)
  - FANCONI SYNDROME ACQUIRED [None]
  - HAEMOGLOBIN DECREASED [None]
  - HYPOCALCAEMIA [None]
  - HYPOKALAEMIA [None]
  - HYPOPHOSPHATAEMIA [None]
  - HYPOTENSION [None]
  - METABOLIC ACIDOSIS [None]
  - RENAL TUBULAR ACIDOSIS [None]
  - URINE POTASSIUM INCREASED [None]
